FAERS Safety Report 10257352 (Version 1)
Quarter: 2014Q2

REPORT INFORMATION
  Report Type: Spontaneous
  Country: US (occurrence: None)
  Receive Date: 20140620
  Receipt Date: 20140620
  Transmission Date: 20141212
  Serious: Yes (Other)
  Sender: FDA-Public Use
  Company Number: 2014US00545

PATIENT
  Sex: Female

DRUGS (5)
  1. EPIRUBICIN [Suspect]
     Indication: BREAST CANCER
  2. 5-FLUOROURACIL [Suspect]
     Indication: BREAST CANCER
  3. CYCLOPHOSPHAMIDE (CYCLOPHOSPHAMIDE) [Suspect]
     Indication: BREAST CANCER
  4. PACLITAXEL (PACLITAXEL) [Suspect]
     Indication: BREAST CANCER
     Route: 042
  5. EVEROLIMUS [Suspect]
     Indication: BREAST CANCER
     Route: 048

REACTIONS (1)
  - Pneumonitis [None]
